FAERS Safety Report 9643595 (Version 1)
Quarter: 2013Q4

REPORT INFORMATION
  Report Type: Spontaneous
  Country: US (occurrence: US)
  Receive Date: 20131024
  Receipt Date: 20131024
  Transmission Date: 20140711
  Serious: Yes (Other)
  Sender: FDA-Public Use
  Company Number: US-GLAXOSMITHKLINE-A1046743A

PATIENT
  Age: 85 Year
  Sex: Male

DRUGS (1)
  1. AVODART [Suspect]
     Indication: METABOLIC DISORDER
     Dosage: .5MG UNKNOWN
     Route: 065
     Dates: start: 20100628

REACTIONS (1)
  - Disability [Not Recovered/Not Resolved]
